FAERS Safety Report 4735312-5 (Version None)
Quarter: 2005Q3

REPORT INFORMATION
  Report Type: 
  Country: None (occurrence: None)
  Receive Date: 20050803
  Receipt Date: 20050714
  Transmission Date: 20060218
  Serious: Yes (Death)
  Sender: FDA-Public Use
  Company Number: USA050597825

PATIENT
  Age: 71 Year
  Sex: Male
  Weight: 100 kg

DRUGS (7)
  1. ALIMTA [Suspect]
     Indication: NON-SMALL CELL LUNG CANCER
     Dosage: 500 MG/M2
     Dates: start: 20050416
  2. GEMZAR [Suspect]
     Indication: NON-SMALL CELL LUNG CANCER
     Dosage: 800 MG/M2
     Dates: start: 20050315
  3. CENTRUM PERFORMANCE MULTIVITAMIN [Concomitant]
  4. VITAMIN B-12 [Concomitant]
  5. DECADRON [Concomitant]
  6. FOLIC ACID [Concomitant]
  7. CARBOPLATIN [Concomitant]

REACTIONS (5)
  - LUNG NEOPLASM MALIGNANT [None]
  - MALIGNANT NEOPLASM PROGRESSION [None]
  - NEUTROPENIA [None]
  - RASH [None]
  - STAPHYLOCOCCAL SEPSIS [None]
